FAERS Safety Report 8249655-4 (Version None)
Quarter: 2012Q2

REPORT INFORMATION
  Report Type: 
  Country: None (occurrence: None)
  Receive Date: 20120402
  Receipt Date: 20120323
  Transmission Date: 20120825
  Serious: Yes (Hospitalization)
  Sender: FDA-Public Use
  Company Number: US-BAYER-2012-028780

PATIENT
  Age: 48 Year
  Sex: Female

DRUGS (18)
  1. CLONAZEPAM [Concomitant]
     Dosage: 0.5 MG, BID
  2. FLUOXETINE HYDROCHLORIDE [Concomitant]
     Dosage: 20 MG DAILY
  3. VALTREX [Concomitant]
     Dosage: 1 GRAM
     Route: 048
  4. HYDROCHLOROTHIAZIDE [Concomitant]
     Dosage: 12.5 MG, 1 TAB DAILY
  5. DROSPIRENONE AND ETHINYL ESTRADIOL [Suspect]
     Dosage: UNK
  6. VITAMIN B-12 [Concomitant]
     Dosage: DAILY
  7. CALCIUM + VITAMIN D [Concomitant]
  8. HYDROMORPHONE HCL [Concomitant]
     Dosage: 2 MG, UNK
     Route: 048
  9. LITHIUM CARBONATE [Concomitant]
     Dosage: 300 MG, UNK
     Route: 048
  10. METHYLPREDNISOLONE [Concomitant]
     Dosage: 4 MG, UNK
     Route: 048
  11. THIAMINE HCL [Concomitant]
  12. SULFAMETHOXAZOLE [Concomitant]
  13. ABILIFY [Concomitant]
  14. MULTI-VITAMIN WITH FOLATE [Concomitant]
     Dosage: DAILY
  15. SUPER B COMPLEX [Concomitant]
     Dosage: DAILY
  16. KLONOPIN [Concomitant]
  17. ONDANSETRON [Concomitant]
     Dosage: 4 MG, UNK
     Route: 048
  18. XANAX [Concomitant]

REACTIONS (2)
  - DEEP VEIN THROMBOSIS [None]
  - PULMONARY EMBOLISM [None]
